FAERS Safety Report 16745914 (Version 1)
Quarter: 2019Q3

REPORT INFORMATION
  Report Type: Spontaneous
  Country: JP (occurrence: JP)
  Receive Date: 20190827
  Receipt Date: 20190827
  Transmission Date: 20191005
  Serious: Yes (Other)
  Sender: FDA-Public Use
  Company Number: PHJP2019JP010997

PATIENT
  Age: 44 Year
  Sex: Male

DRUGS (4)
  1. VIMPAT [Concomitant]
     Active Substance: LACOSAMIDE
     Indication: PRODUCT USED FOR UNKNOWN INDICATION
     Dosage: 300 MG, UNK (100 MG AT BREAKFAST, 50 MG AT 3 P.M., 50 MG AT DINNER, 100 MG BEFORE BED TIME)
     Route: 065
  2. FYCOMPA [Concomitant]
     Active Substance: PERAMPANEL
     Indication: PRODUCT USED FOR UNKNOWN INDICATION
     Dosage: 8 MG, QD (BEFORE BED TIME)
     Route: 065
  3. E KEPPRA [Concomitant]
     Active Substance: LEVETIRACETAM
     Indication: PRODUCT USED FOR UNKNOWN INDICATION
     Dosage: 1250 MG, UNK (500 MG AT BREAKFAST, 250 MG AT DINNER, 500 MG BEFORE BED TIME)
     Route: 065
  4. TEGRETOL [Suspect]
     Active Substance: CARBAMAZEPINE
     Indication: PRODUCT USED FOR UNKNOWN INDICATION
     Dosage: 100 MG, BID (100 MG AT BREAKFAST, 100 MG AT DINNER)
     Route: 048

REACTIONS (1)
  - Epilepsy [Unknown]
